FAERS Safety Report 18742136 (Version 2)
Quarter: 2021Q2

REPORT INFORMATION
  Report Type: Report from Study
  Country: RO (occurrence: RO)
  Receive Date: 20210114
  Receipt Date: 20210409
  Transmission Date: 20210717
  Serious: Yes (Hospitalization)
  Sender: FDA-Public Use
  Company Number: RO-TAKEDA-2021TUS002465

PATIENT
  Age: 55 Year
  Sex: Female

DRUGS (9)
  1. ROSUCARD [Concomitant]
     Active Substance: ROSUVASTATIN CALCIUM
     Indication: PRODUCT USED FOR UNKNOWN INDICATION
     Dosage: UNK UNK, QD
     Route: 065
  2. LIV 52 [ACHILLEA MILLEFOLIUM;AYURVEDIC PREPARATION NOS;CAPPARIS SPINOS [Concomitant]
     Indication: PROPHYLAXIS
     Dosage: UNK UNK, QD
     Route: 065
  3. EUTHYROX [Concomitant]
     Active Substance: LEVOTHYROXINE SODIUM
     Indication: ENDOCRINE DISORDER
     Dosage: UNK UNK, BID
     Route: 065
  4. INSULIN [Concomitant]
     Active Substance: INSULIN NOS
     Dosage: UNK
     Route: 065
  5. MILURIT [Concomitant]
     Active Substance: ALLOPURINOL
     Indication: RENAL DISORDER
     Dosage: UNK UNK, QD
     Route: 065
  6. ATACAND [Concomitant]
     Active Substance: CANDESARTAN CILEXETIL
     Indication: CARDIAC DISORDER
     Dosage: UNK UNK, QD
     Route: 065
  7. IXAZOMIB [Suspect]
     Active Substance: IXAZOMIB
     Indication: PLASMA CELL MYELOMA
     Dosage: 4 MILLIGRAM
     Route: 048
     Dates: start: 20200730
  8. DEXAMETHASONE. [Suspect]
     Active Substance: DEXAMETHASONE
     Indication: PLASMA CELL MYELOMA
     Dosage: 20 MILLIGRAM
     Route: 065
     Dates: start: 20200730
  9. LENALIDOMIDE [Suspect]
     Active Substance: LENALIDOMIDE
     Indication: PLASMA CELL MYELOMA
     Dosage: 15 MILLIGRAM
     Route: 065
     Dates: start: 20200730

REACTIONS (1)
  - Haemoglobin decreased [Not Recovered/Not Resolved]

NARRATIVE: CASE EVENT DATE: 202101
